FAERS Safety Report 15413159 (Version 1)
Quarter: 2018Q3

REPORT INFORMATION
  Report Type: Spontaneous
  Country: US (occurrence: US)
  Receive Date: 20180921
  Receipt Date: 20180921
  Transmission Date: 20181010
  Serious: No
  Sender: FDA-Public Use
  Company Number: US-SA-2018SA261856

PATIENT
  Sex: Female

DRUGS (11)
  1. AUBAGIO [Suspect]
     Active Substance: TERIFLUNOMIDE
     Dosage: 14 MG, QD
     Dates: start: 20170830
  2. AMOXICILLIN. [Concomitant]
     Active Substance: AMOXICILLIN
  3. FLUOXETINE [Concomitant]
     Active Substance: FLUOXETINE HYDROCHLORIDE
  4. LORAZEPAM. [Concomitant]
     Active Substance: LORAZEPAM
  5. TRIAMTERENE. [Concomitant]
     Active Substance: TRIAMTERENE
  6. AMITRIPTYLIN [Concomitant]
     Active Substance: AMITRIPTYLINE
  7. ATENOLOL. [Concomitant]
     Active Substance: ATENOLOL
  8. DICLOFENAC [Concomitant]
     Active Substance: DICLOFENAC
  9. PANTOPRAZOLE [Concomitant]
     Active Substance: PANTOPRAZOLE
  10. GABAPENTIN. [Concomitant]
     Active Substance: GABAPENTIN
  11. PERMETHRIN. [Concomitant]
     Active Substance: PERMETHRIN

REACTIONS (2)
  - Swelling [Recovered/Resolved]
  - Pruritus generalised [Recovered/Resolved]
